FAERS Safety Report 14259488 (Version 2)
Quarter: 2018Q1

REPORT INFORMATION
  Report Type: Spontaneous
  Country: US (occurrence: US)
  Receive Date: 20171207
  Receipt Date: 20180124
  Transmission Date: 20180508
  Serious: Yes (Other)
  Sender: FDA-Public Use
  Company Number: US-REGENERON PHARMACEUTICALS, INC.-2017-25049

PATIENT

DRUGS (1)
  1. EYLEA [Suspect]
     Active Substance: AFLIBERCEPT
     Indication: NEOVASCULAR AGE-RELATED MACULAR DEGENERATION
     Dosage: 2 MG, Q6 WKS
     Route: 031
     Dates: start: 2015, end: 20170911

REACTIONS (6)
  - Eye pain [Recovered/Resolved]
  - Vitreous floaters [Recovered/Resolved]
  - Vitrectomy [Recovered/Resolved]
  - Uveitis [Recovered/Resolved]
  - Intraocular pressure increased [Recovered/Resolved]
  - Blindness unilateral [Not Recovered/Not Resolved]

NARRATIVE: CASE EVENT DATE: 20170911
